FAERS Safety Report 4545530-7 (Version None)
Quarter: 2005Q1

REPORT INFORMATION
  Report Type: 
  Country: None (occurrence: None)
  Receive Date: 20050103
  Receipt Date: 20041215
  Transmission Date: 20050727
  Serious: Yes (Other)
  Sender: FDA-Public Use
  Company Number: USA041286207

PATIENT
  Age: 45 Year
  Sex: Male

DRUGS (6)
  1. CYMBALTA [Suspect]
     Indication: DIABETIC NEUROPATHY
     Dosage: 60 MG/1 DAY
     Dates: start: 20041210, end: 20041213
  2. POTASSIUM [Concomitant]
  3. BLOOD PRESSURE DRUG [Concomitant]
  4. NEURONTIN (GABAPENTIN PFIZER) [Concomitant]
  5. GLUCOVANCE [Concomitant]
  6. DIURETIC [Concomitant]

REACTIONS (3)
  - APHAGIA [None]
  - BLOOD GLUCOSE INCREASED [None]
  - DEHYDRATION [None]
